FAERS Safety Report 23751836 (Version 2)
Quarter: 2024Q2

REPORT INFORMATION
  Report Type: Spontaneous
  Country: CN (occurrence: CN)
  Receive Date: 20240417
  Receipt Date: 20240422
  Transmission Date: 20240716
  Serious: Yes (Life-Threatening, Other)
  Sender: FDA-Public Use
  Company Number: CN-MLMSERVICE-20240408-PI006906-00117-1

PATIENT
  Age: 46 Month
  Sex: Female

DRUGS (8)
  1. CYTARABINE [Suspect]
     Active Substance: CYTARABINE
     Indication: B-cell type acute leukaemia
     Dosage: UNK
     Route: 037
     Dates: start: 202207, end: 2022
  2. METHOTREXATE SODIUM [Suspect]
     Active Substance: METHOTREXATE SODIUM
     Indication: B-cell type acute leukaemia
     Dosage: UNK
     Route: 037
     Dates: start: 202207, end: 2022
  3. DEXAMETHASONE [Suspect]
     Active Substance: DEXAMETHASONE
     Indication: B-cell type acute leukaemia
     Dosage: UNK
     Route: 037
     Dates: start: 202207, end: 2022
  4. DEXAMETHASONE [Suspect]
     Active Substance: DEXAMETHASONE
     Indication: B-cell type acute leukaemia
     Dosage: UNK, INDUCTION CHEMOTHERAPY
     Dates: start: 202207, end: 2022
  5. VINCRISTINE [Suspect]
     Active Substance: VINCRISTINE
     Indication: B-cell type acute leukaemia
     Dosage: UNK, INDUCTION CHEMOTHERAPY
     Dates: start: 202207, end: 2022
  6. DAUNORUBICIN [Suspect]
     Active Substance: DAUNORUBICIN
     Indication: B-cell type acute leukaemia
     Dosage: UNK, INDUCTION CHEMOTHERAPY
     Dates: start: 202207, end: 2022
  7. SULBACTAM SODIUM [Concomitant]
     Active Substance: SULBACTAM SODIUM
     Indication: Pneumonia
     Dosage: 0.75 G, 3X/DAY
     Route: 042
     Dates: start: 2022
  8. CEFOPERAZONE SODIUM [Concomitant]
     Active Substance: CEFOPERAZONE SODIUM
     Indication: Pneumonia
     Dosage: UNK
     Dates: start: 2022

REACTIONS (3)
  - Fungaemia [Unknown]
  - Encephalitis fungal [Unknown]
  - Neutropenia [Unknown]

NARRATIVE: CASE EVENT DATE: 20220101
